FAERS Safety Report 25893531 (Version 1)
Quarter: 2025Q4

REPORT INFORMATION
  Report Type: Spontaneous
  Country: US (occurrence: US)
  Receive Date: 20251008
  Receipt Date: 20251008
  Transmission Date: 20260118
  Serious: Yes (Other)
  Sender: ALK-ABELLO
  Company Number: US-ALK-ABELLO A/S-2025AA003411

PATIENT

DRUGS (1)
  1. ODACTRA [Suspect]
     Active Substance: DERMATOPHAGOIDES FARINAE\DERMATOPHAGOIDES PTERONYSSINUS
     Indication: Product used for unknown indication

REACTIONS (3)
  - Pharyngeal oedema [Recovered/Resolved]
  - Asthenia [Recovered/Resolved]
  - Bradycardia [Recovered/Resolved]
